FAERS Safety Report 8163629-3 (Version None)
Quarter: 2012Q1

REPORT INFORMATION
  Report Type: 
  Country: None (occurrence: None)
  Receive Date: 20120103
  Receipt Date: 20111016
  Transmission Date: 20120608
  Serious: No
  Sender: FDA-Public Use
  Company Number: AE-2011-002384

PATIENT
  Age: 46 Year
  Sex: Male
  Weight: 79.3795 kg

DRUGS (7)
  1. INCIVEK [Suspect]
     Dosage: 2250 MG (750 MG,1 IN 8 HR),ORAL
     Route: 048
     Dates: start: 20111012
  2. ASPIRIN [Concomitant]
  3. PEGASYS [Concomitant]
  4. RIBAVIRIN [Concomitant]
  5. XANAX [Concomitant]
  6. MULTIVITAMIN [Concomitant]
  7. IBUPROFEN [Concomitant]

REACTIONS (2)
  - RECTAL HAEMORRHAGE [None]
  - ANAL PRURITUS [None]
